FAERS Safety Report 17540000 (Version 3)
Quarter: 2021Q1

REPORT INFORMATION
  Report Type: Spontaneous
  Country: US (occurrence: US)
  Receive Date: 20200313
  Receipt Date: 20210106
  Transmission Date: 20210419
  Serious: Yes (Other)
  Sender: FDA-Public Use
  Company Number: US-SA-2020SA064148

PATIENT

DRUGS (1)
  1. DUPIXENT [Suspect]
     Active Substance: DUPILUMAB
     Indication: DERMATITIS ATOPIC
     Dosage: 300 MG, QOW
     Route: 058
     Dates: start: 20200108

REACTIONS (3)
  - Knee arthroplasty [Unknown]
  - Nasopharyngitis [Recovering/Resolving]
  - Eczema [Unknown]

NARRATIVE: CASE EVENT DATE: 2020
